FAERS Safety Report 16894109 (Version 1)
Quarter: 2019Q4

REPORT INFORMATION
  Report Type: Spontaneous
  Country: US (occurrence: US)
  Receive Date: 20191007
  Receipt Date: 20191007
  Transmission Date: 20200122
  Serious: Yes (Hospitalization, Disabling)
  Sender: FDA-Public Use
  Company Number: None

PATIENT
  Age: 64 Year
  Sex: Female
  Weight: 39.6 kg

DRUGS (7)
  1. PEPCID [Concomitant]
     Active Substance: FAMOTIDINE
  2. DULOXETINE. [Concomitant]
     Active Substance: DULOXETINE
  3. DULOXETINE. [Suspect]
     Active Substance: DULOXETINE
     Indication: PAIN
     Dosage: ?          QUANTITY:1 CAPSULE(S);?
     Route: 048
  4. TRAZODONE [Concomitant]
     Active Substance: TRAZODONE HYDROCHLORIDE
  5. FERROUS SULFATE. [Concomitant]
     Active Substance: FERROUS SULFATE
  6. SENNA [Concomitant]
     Active Substance: SENNA LEAF\SENNOSIDES\SENNOSIDES A AND B
  7. HYDROCODNE [Concomitant]

REACTIONS (10)
  - Pain [None]
  - Paraesthesia [None]
  - Balance disorder [None]
  - Weight decreased [None]
  - Vomiting [None]
  - Dehydration [None]
  - Hypoaesthesia [None]
  - Withdrawal syndrome [None]
  - Decreased appetite [None]
  - Oesophageal haemorrhage [None]

NARRATIVE: CASE EVENT DATE: 20171201
